FAERS Safety Report 18607367 (Version 1)
Quarter: 2020Q4

REPORT INFORMATION
  Report Type: Spontaneous
  Country: US (occurrence: US)
  Receive Date: 20201211
  Receipt Date: 20201211
  Transmission Date: 20210114
  Serious: No
  Sender: FDA-Public Use
  Company Number: US-PFIZER INC-2019280913

PATIENT
  Age: 69 Year
  Sex: Male

DRUGS (2)
  1. LYRICA [Suspect]
     Active Substance: PREGABALIN
     Dosage: 200 MG, 2X/DAY (100 MG CAPSULE, 2 CAPSULE 2 TIMES EVERY DAY)
     Route: 048
  2. LYRICA [Suspect]
     Active Substance: PREGABALIN
     Dosage: 200 MG, 2X/DAY (200 MG CAPSULE, 1 CAPSULE 2 TIMES EVERY DAY)
     Route: 048

REACTIONS (1)
  - Therapeutic product effect incomplete [Unknown]
